FAERS Safety Report 9353563 (Version 1)
Quarter: 2013Q2

REPORT INFORMATION
  Report Type: Spontaneous
  Country: GB (occurrence: GB)
  Receive Date: 20130618
  Receipt Date: 20130618
  Transmission Date: 20140414
  Serious: Yes (Other)
  Sender: FDA-Public Use
  Company Number: GB-PFIZER INC-2013176945

PATIENT
  Age: 43 Year
  Sex: Male

DRUGS (1)
  1. CISPLATIN [Suspect]
     Indication: URETHRAL CANCER
     Dosage: 40 MG/M2, WEEKLY

REACTIONS (1)
  - Skin toxicity [Recovering/Resolving]
